FAERS Safety Report 8598716-9 (Version None)
Quarter: 2012Q3

REPORT INFORMATION
  Report Type: 
  Country: None (occurrence: None)
  Receive Date: 20120816
  Receipt Date: 19900601
  Transmission Date: 20120928
  Serious: Yes (Death, Other)
  Sender: FDA-Public Use
  Company Number: US-ROCHE-1100663

PATIENT
  Sex: Female

DRUGS (3)
  1. LEVOTHYROXINE SODIUM [Concomitant]
  2. ACTIVASE [Suspect]
     Indication: ACUTE MYOCARDIAL INFARCTION
     Dates: start: 19900204
  3. OGEN [Concomitant]

REACTIONS (4)
  - CARDIOGENIC SHOCK [None]
  - NO THERAPEUTIC RESPONSE [None]
  - DEATH [None]
  - SINUS BRADYCARDIA [None]
